FAERS Safety Report 8590644-8 (Version None)
Quarter: 2012Q3

REPORT INFORMATION
  Report Type: 
  Country: None (occurrence: None)
  Receive Date: 20120813
  Receipt Date: 20120808
  Transmission Date: 20120928
  Serious: No
  Sender: FDA-Public Use
  Company Number: US-PFIZER INC-2012193619

PATIENT
  Age: 38 Year
  Sex: Female
  Weight: 65.76 kg

DRUGS (1)
  1. ZOLOFT [Suspect]
     Indication: ANXIETY
     Dosage: 25 MG, DAILY
     Dates: start: 20120416, end: 20120616

REACTIONS (3)
  - BLOOD ALKALINE PHOSPHATASE INCREASED [None]
  - PRURITUS [None]
  - ASPARTATE AMINOTRANSFERASE INCREASED [None]
